FAERS Safety Report 5839472-4 (Version None)
Quarter: 2008Q3

REPORT INFORMATION
  Report Type: 
  Country: None (occurrence: None)
  Receive Date: 20080807
  Receipt Date: 20080804
  Transmission Date: 20090109
  Serious: Yes (Other)
  Sender: FDA-Public Use
  Company Number: 2008SP015771

PATIENT
  Age: 62 Year
  Sex: Female

DRUGS (2)
  1. DESLORATADINE [Suspect]
     Indication: ARTHROPOD STING
     Dosage: 5 MG; QD; PO
     Route: 048
     Dates: start: 20080725, end: 20080725
  2. DIPROSONE (CON.) [Concomitant]

REACTIONS (1)
  - ANGIOEDEMA [None]
